FAERS Safety Report 5449541-9 (Version None)
Quarter: 2007Q3

REPORT INFORMATION
  Report Type: 
  Country: None (occurrence: None)
  Receive Date: 20070907
  Receipt Date: 20070809
  Transmission Date: 20080115
  Serious: Yes (Death, Hospitalization, Other)
  Sender: FDA-Public Use
  Company Number: 2007US001916

PATIENT
  Age: 63 Year
  Sex: Male

DRUGS (6)
  1. PROGRAF [Suspect]
     Indication: PROPHYLAXIS AGAINST TRANSPLANT REJECTION
  2. CELLCEPT [Concomitant]
  3. METHOTREXATE [Concomitant]
  4. FLUCONAZOLE [Concomitant]
  5. FLUDARABINE PHOSPHATE [Concomitant]
  6. CYCLOPHOSPHAMIDE [Concomitant]

REACTIONS (13)
  - ACUTE GRAFT VERSUS HOST DISEASE IN SKIN [None]
  - DISEASE RECURRENCE [None]
  - DIVERTICULITIS [None]
  - ESCHERICHIA BACTERAEMIA [None]
  - HEPATIC INFECTION FUNGAL [None]
  - MUCORMYCOSIS [None]
  - NEUTROPENIA [None]
  - PANCYTOPENIA [None]
  - PNEUMONITIS [None]
  - POST PROCEDURAL COMPLICATION [None]
  - PULMONARY HAEMORRHAGE [None]
  - RENAL NEOPLASM [None]
  - ZYGOMYCOSIS [None]
